FAERS Safety Report 23584685 (Version 1)
Quarter: 2024Q1

REPORT INFORMATION
  Report Type: Spontaneous
  Country: US (occurrence: US)
  Receive Date: 20240301
  Receipt Date: 20240301
  Transmission Date: 20240410
  Serious: No
  Sender: FDA-Public Use
  Company Number: US-RECORDATI RARE DISEASE INC.-2023008467

PATIENT

DRUGS (1)
  1. CYSTADANE [Suspect]
     Active Substance: BETAINE
     Indication: Product used for unknown indication
     Dosage: 25 GRAM, QD
     Route: 048
     Dates: start: 20140728

REACTIONS (2)
  - Glycosylated haemoglobin increased [Unknown]
  - Blood creatine abnormal [Unknown]

NARRATIVE: CASE EVENT DATE: 20230101
